FAERS Safety Report 4503041-9 (Version None)
Quarter: 2004Q4

REPORT INFORMATION
  Report Type: 
  Country: None (occurrence: None)
  Receive Date: 20041112
  Receipt Date: 20041101
  Transmission Date: 20050328
  Serious: Yes (Hospitalization)
  Sender: FDA-Public Use
  Company Number: 2002SE03539

PATIENT
  Age: 75 Year
  Sex: Female
  Weight: 51 kg

DRUGS (9)
  1. BLOPRESS [Suspect]
     Indication: ESSENTIAL HYPERTENSION
     Dosage: 4 MG QD PO
     Route: 048
     Dates: start: 19990817
  2. AMLODIPINE BESYLATE [Concomitant]
  3. GLYBURIDE [Concomitant]
  4. EPINASTINE HYDROCHLORIDE [Concomitant]
  5. BASEN [Concomitant]
  6. CALCITRIOL [Concomitant]
  7. BUFFERIN [Concomitant]
  8. ACETYLSALICYLIC ACID [Concomitant]
  9. LANSOPRAZOLE [Concomitant]

REACTIONS (7)
  - ANGINA UNSTABLE [None]
  - BLOOD CHOLESTEROL DECREASED [None]
  - BLOOD TRIGLYCERIDES INCREASED [None]
  - BLOOD UREA INCREASED [None]
  - CORONARY ARTERY STENOSIS [None]
  - LOW DENSITY LIPOPROTEIN DECREASED [None]
  - PROTEIN URINE PRESENT [None]
